FAERS Safety Report 12265255 (Version 2)
Quarter: 2016Q2

REPORT INFORMATION
  Report Type: Spontaneous
  Country: BE (occurrence: BE)
  Receive Date: 20160413
  Receipt Date: 20160418
  Transmission Date: 20160815
  Serious: Yes (Other)
  Sender: FDA-Public Use
  Company Number: BE-SA-2016SA068611

PATIENT
  Sex: Female

DRUGS (4)
  1. DAFALGAN [Concomitant]
     Active Substance: ACETAMINOPHEN
  2. ALEMTUZUMAB [Suspect]
     Active Substance: ALEMTUZUMAB
     Indication: MULTIPLE SCLEROSIS
     Route: 065
     Dates: start: 201603
  3. CORTISONE [Concomitant]
     Active Substance: CORTISONE\HYDROCORTISONE
  4. ACYCLOVIR. [Concomitant]
     Active Substance: ACYCLOVIR

REACTIONS (4)
  - Herpes zoster [Recovering/Resolving]
  - Fatigue [Recovering/Resolving]
  - Rash pruritic [Recovering/Resolving]
  - Headache [Recovering/Resolving]

NARRATIVE: CASE EVENT DATE: 20160331
